FAERS Safety Report 15322162 (Version 1)
Quarter: 2018Q3

REPORT INFORMATION
  Report Type: Report from Study
  Country: ES (occurrence: ES)
  Receive Date: 20180827
  Receipt Date: 20180827
  Transmission Date: 20181010
  Serious: Yes (Other)
  Sender: FDA-Public Use
  Company Number: ES-ASTELLAS-2018US031979

PATIENT
  Age: 58 Year
  Sex: Female
  Weight: 65 kg

DRUGS (1)
  1. TACROLIMUS. [Suspect]
     Active Substance: TACROLIMUS
     Indication: IMMUNOSUPPRESSION
     Dosage: 6.5 (UNITS NOT PROVIDED), UNKNOWN FREQ.
     Route: 048
     Dates: start: 20170424

REACTIONS (1)
  - Overweight [Recovered/Resolved]

NARRATIVE: CASE EVENT DATE: 20170427
